FAERS Safety Report 18417741 (Version 3)
Quarter: 2021Q3

REPORT INFORMATION
  Report Type: Report from Study
  Country: JP (occurrence: JP)
  Receive Date: 20201022
  Receipt Date: 20210712
  Transmission Date: 20211014
  Serious: Yes (Death, Other)
  Sender: FDA-Public Use
  Company Number: JP-UCBSA-2020041435

PATIENT
  Age: 72 Year
  Sex: Male
  Weight: 76.2 kg

DRUGS (20)
  1. VIMPAT [Suspect]
     Active Substance: LACOSAMIDE
     Indication: FOCAL DYSCOGNITIVE SEIZURES
     Dosage: UNK
     Route: 048
     Dates: start: 20200828, end: 20200829
  2. AMITIZA [Concomitant]
     Active Substance: LUBIPROSTONE
     Indication: PRODUCT USED FOR UNKNOWN INDICATION
     Route: 048
     Dates: start: 20200827, end: 20200827
  3. LACOSAMIDE. [Suspect]
     Active Substance: LACOSAMIDE
     Indication: FOCAL DYSCOGNITIVE SEIZURES
     Dosage: UNK
     Route: 041
     Dates: start: 20200825, end: 20200827
  4. PROPOFOL. [Concomitant]
     Active Substance: PROPOFOL
     Indication: PRODUCT USED FOR UNKNOWN INDICATION
     Dates: start: 20200826, end: 20200826
  5. VIMPAT [Suspect]
     Active Substance: LACOSAMIDE
     Indication: FOCAL DYSCOGNITIVE SEIZURES
     Dosage: UNK
     Route: 048
     Dates: start: 20200820, end: 20200825
  6. FOSTOIN [Concomitant]
     Active Substance: FOSPHENYTOIN SODIUM
     Indication: FOCAL DYSCOGNITIVE SEIZURES
     Dates: start: 20200826, end: 20200826
  7. FOSTOIN [Concomitant]
     Active Substance: FOSPHENYTOIN SODIUM
     Route: 050
     Dates: start: 20200827, end: 20200829
  8. FYCOMPA [Concomitant]
     Active Substance: PERAMPANEL
     Indication: FOCAL DYSCOGNITIVE SEIZURES
     Route: 048
     Dates: start: 20200827, end: 20200829
  9. CARBAZOCHROME SULFONATE NA [Concomitant]
     Indication: PROPHYLAXIS
     Dates: start: 20200825, end: 20200825
  10. FOSMICIN?S [Concomitant]
     Active Substance: FOSFOMYCIN SODIUM
     Indication: PROPHYLAXIS
     Dates: start: 20200825, end: 20200827
  11. E KEPPRA [Suspect]
     Active Substance: LEVETIRACETAM
     Indication: FOCAL DYSCOGNITIVE SEIZURES
     Dosage: UNK
     Dates: start: 20200818, end: 20200820
  12. E KEPPRA [Suspect]
     Active Substance: LEVETIRACETAM
     Dosage: 2000 MILLIGRAM, PER DAY
     Route: 048
     Dates: start: 20200821, end: 20200825
  13. OMEPRAZOLE. [Concomitant]
     Active Substance: OMEPRAZOLE
     Indication: PRODUCT USED FOR UNKNOWN INDICATION
     Dates: start: 20200825, end: 20200826
  14. CERCINE [Concomitant]
     Active Substance: DIAZEPAM
     Indication: FOCAL DYSCOGNITIVE SEIZURES
     Dates: start: 20200826, end: 20200826
  15. TRANEXAMIC ACID. [Concomitant]
     Active Substance: TRANEXAMIC ACID
     Indication: PROPHYLAXIS
     Dates: start: 20200825, end: 20200825
  16. NICARDIPINE HYDROCHLORIDE. [Concomitant]
     Active Substance: NICARDIPINE HYDROCHLORIDE
     Indication: PRODUCT USED FOR UNKNOWN INDICATION
     Route: 050
     Dates: start: 20200825, end: 20200825
  17. NICARDIPINE HYDROCHLORIDE. [Concomitant]
     Active Substance: NICARDIPINE HYDROCHLORIDE
     Dosage: 100 MILLIGRAM, ONCE DAILY (QD)
     Route: 050
     Dates: start: 20200826, end: 20200827
  18. MAGMITT [Concomitant]
     Active Substance: MAGNESIUM OXIDE
     Indication: PRODUCT USED FOR UNKNOWN INDICATION
     Route: 048
     Dates: start: 20200827, end: 20200829
  19. GLYCERIN?FRUCTOSE [Concomitant]
     Active Substance: FRUCTOSE\GLYCERIN
     Indication: PRODUCT USED FOR UNKNOWN INDICATION
     Dates: start: 20200825, end: 20200827
  20. MIDAZOLAM. [Concomitant]
     Active Substance: MIDAZOLAM
     Indication: FOCAL DYSCOGNITIVE SEIZURES
     Dates: start: 20200821, end: 20200826

REACTIONS (3)
  - Mesenteric arterial occlusion [Fatal]
  - Intestinal ischaemia [Fatal]
  - Status epilepticus [Unknown]

NARRATIVE: CASE EVENT DATE: 20200826
